FAERS Safety Report 14963199 (Version 2)
Quarter: 2018Q3

REPORT INFORMATION
  Report Type: Spontaneous
  Country: US (occurrence: US)
  Receive Date: 20180601
  Receipt Date: 20180706
  Transmission Date: 20181010
  Serious: No
  Sender: FDA-Public Use
  Company Number: US-GLAXOSMITHKLINE-US2018GSK093790

PATIENT
  Sex: Female
  Weight: 90.7 kg

DRUGS (1)
  1. NUCALA [Suspect]
     Active Substance: MEPOLIZUMAB
     Indication: ASTHMA
     Dosage: UNK, SINGLE
     Route: 042
     Dates: start: 20180410, end: 20180410

REACTIONS (3)
  - Headache [Unknown]
  - Fatigue [Unknown]
  - Somnolence [Unknown]
